FAERS Safety Report 8286818-6 (Version None)
Quarter: 2012Q2

REPORT INFORMATION
  Report Type: 
  Country: None (occurrence: None)
  Receive Date: 20120416
  Receipt Date: 20120404
  Transmission Date: 20120825
  Serious: Yes (Hospitalization)
  Sender: FDA-Public Use
  Company Number: GB-BRISTOL-MYERS SQUIBB COMPANY-16505505

PATIENT
  Age: 48 Year
  Sex: Female
  Weight: 86 kg

DRUGS (8)
  1. ETOPOSIDE [Suspect]
     Indication: SMALL CELL LUNG CANCER EXTENSIVE STAGE
     Dates: start: 20120105, end: 20120316
  2. OMEPRAZOLE [Concomitant]
  3. IPILIMUMAB [Suspect]
     Indication: SMALL CELL LUNG CANCER STAGE UNSPECIFIED
     Dates: start: 20120224, end: 20120316
  4. TINZAPARIN [Suspect]
  5. CARBOPLATIN [Suspect]
     Indication: SMALL CELL LUNG CANCER EXTENSIVE STAGE
     Dates: start: 20120105, end: 20120316
  6. ALBUTEROL [Concomitant]
     Dosage: INHALER
  7. BECLOMETHASONE DIPROPIONATE [Concomitant]
     Dosage: INHALER
  8. LEVOTHYROXINE SODIUM [Concomitant]

REACTIONS (1)
  - HAEMOPTYSIS [None]
